FAERS Safety Report 13588367 (Version 1)
Quarter: 2017Q2

REPORT INFORMATION
  Report Type: Spontaneous
  Country: US (occurrence: US)
  Receive Date: 20170528
  Receipt Date: 20170528
  Transmission Date: 20170830
  Serious: No
  Sender: FDA-Public Use
  Company Number: US-GLAXOSMITHKLINE-US2017076831

PATIENT
  Age: 66 Year
  Sex: Male

DRUGS (14)
  1. TANZEUM [Suspect]
     Active Substance: ALBIGLUTIDE
     Indication: TYPE 2 DIABETES MELLITUS
     Dosage: 50 MG, WE
     Route: 042
     Dates: start: 20170521
  2. OMEPRAZOLE. [Concomitant]
     Active Substance: OMEPRAZOLE
  3. FUROSEMIDE. [Concomitant]
     Active Substance: FUROSEMIDE
  4. VICTOZA [Concomitant]
     Active Substance: LIRAGLUTIDE
  5. SUCRALFATE. [Concomitant]
     Active Substance: SUCRALFATE
  6. ISOSORBIDE MONONITRATE ER [Concomitant]
     Active Substance: ISOSORBIDE MONONITRATE
  7. ATORVASTATIN [Concomitant]
     Active Substance: ATORVASTATIN
  8. DULOXETINE. [Concomitant]
     Active Substance: DULOXETINE
  9. LEVEMIR [Concomitant]
     Active Substance: INSULIN DETEMIR
  10. METFORMIN HYDROCHLORIDE. [Concomitant]
     Active Substance: METFORMIN HYDROCHLORIDE
  11. METOPROLOL TARTRATE. [Concomitant]
     Active Substance: METOPROLOL TARTRATE
  12. NOVOLOG [Concomitant]
     Active Substance: INSULIN ASPART
  13. ASPIRIN. [Concomitant]
     Active Substance: ASPIRIN
  14. LISINOPRIL. [Concomitant]
     Active Substance: LISINOPRIL

REACTIONS (7)
  - Blood glucose decreased [Recovering/Resolving]
  - Cold sweat [Recovered/Resolved]
  - Malaise [Recovering/Resolving]
  - Lethargy [Recovered/Resolved]
  - Hyperhidrosis [Recovered/Resolved]
  - Syncope [Recovered/Resolved]
  - Asthenia [Recovered/Resolved]

NARRATIVE: CASE EVENT DATE: 20170522
